FAERS Safety Report 4640997-8 (Version None)
Quarter: 2005Q2

REPORT INFORMATION
  Report Type: 
  Country: None (occurrence: None)
  Receive Date: 20050419
  Receipt Date: 20050419
  Transmission Date: 20051028
  Serious: No
  Sender: FDA-Public Use
  Company Number: None

PATIENT
  Age: 73 Year
  Sex: Male
  Weight: 96.2 kg

DRUGS (5)
  1. MONOPRIL [Suspect]
     Indication: HYPERTENSION
     Dosage: 20 MG, 20 MG QD, ORAL
     Route: 048
  2. IRBESARTAN [Concomitant]
  3. CEPHALEXIN [Concomitant]
  4. OMEPRAZOLE [Concomitant]
  5. DICLOFENAC SODIUM [Concomitant]

REACTIONS (1)
  - OEDEMA [None]
